FAERS Safety Report 19973071 (Version 1)
Quarter: 2021Q4

REPORT INFORMATION
  Report Type: Spontaneous
  Country: US (occurrence: US)
  Receive Date: 20211018
  Receipt Date: 20211018
  Transmission Date: 20220303
  Serious: No
  Sender: FDA-Public Use
  Company Number: None

PATIENT
  Age: 64 Year
  Sex: Female
  Weight: 83.01 kg

DRUGS (4)
  1. FORTEO [Suspect]
     Active Substance: TERIPARATIDE
     Indication: Rheumatoid arthritis
     Dosage: ?          OTHER STRENGTH:600MCG/2.4ML;
     Route: 058
     Dates: start: 202106
  2. FORTEO [Suspect]
     Active Substance: TERIPARATIDE
     Indication: Senile osteoporosis
  3. HUMIRA [Suspect]
     Active Substance: ADALIMUMAB
     Indication: Rheumatoid arthritis
     Route: 058
     Dates: start: 202106
  4. HUMIRA [Suspect]
     Active Substance: ADALIMUMAB
     Indication: Senile osteoporosis

REACTIONS (2)
  - Therapy interrupted [None]
  - Respiratory tract infection [None]
